FAERS Safety Report 5340322-3 (Version None)
Quarter: 2007Q2

REPORT INFORMATION
  Report Type: 
  Country: None (occurrence: None)
  Receive Date: 20070405
  Receipt Date: 20061215
  Transmission Date: 20071010
  Serious: Yes (Other)
  Sender: FDA-Public Use
  Company Number: US200612003702

PATIENT
  Sex: Female

DRUGS (2)
  1. CYMBALTA [Suspect]
     Dates: start: 20040101
  2. RELPAX (ELETRIPTAN HYDROBROMIDE) [Concomitant]

REACTIONS (1)
  - SEROTONIN SYNDROME [None]
